FAERS Safety Report 5735289-X (Version None)
Quarter: 2008Q2

REPORT INFORMATION
  Report Type: 
  Country: None (occurrence: None)
  Receive Date: 20080508
  Receipt Date: 20080428
  Transmission Date: 20081010
  Serious: Yes (Hospitalization)
  Sender: FDA-Public Use
  Company Number: 2008BI006580

PATIENT
  Age: 63 Year
  Sex: Female
  Weight: 75.7507 kg

DRUGS (5)
  1. AVONEX [Suspect]
     Indication: MULTIPLE SCLEROSIS
     Dosage: 30 UG;QW;IM
     Route: 030
     Dates: start: 19970101
  2. ACCURETIC [Concomitant]
  3. PREMPRO [Concomitant]
  4. ASPIRIN [Concomitant]
  5. MULTI-VITAMIN [Concomitant]

REACTIONS (19)
  - ASTHENIA [None]
  - BETA HAEMOLYTIC STREPTOCOCCAL INFECTION [None]
  - BLADDER DISORDER [None]
  - DECUBITUS ULCER [None]
  - DIZZINESS [None]
  - ESCHERICHIA URINARY TRACT INFECTION [None]
  - GAIT SPASTIC [None]
  - INTERVERTEBRAL DISC PROTRUSION [None]
  - JOINT SWELLING [None]
  - LYMPHOEDEMA [None]
  - MUSCLE SPASMS [None]
  - MUSCULOSKELETAL DISCOMFORT [None]
  - MUSCULOSKELETAL STIFFNESS [None]
  - NERVE ROOT COMPRESSION [None]
  - OEDEMA PERIPHERAL [None]
  - PNEUMONIA [None]
  - RETCHING [None]
  - SPINAL OSTEOARTHRITIS [None]
  - VENOUS STASIS [None]
